FAERS Safety Report 20713962 (Version 1)
Quarter: 2022Q2

REPORT INFORMATION
  Report Type: Spontaneous
  Country: US (occurrence: None)
  Receive Date: 20220414
  Receipt Date: 20220414
  Transmission Date: 20220721
  Serious: Yes (Hospitalization)
  Sender: FDA-Public Use
  Company Number: None

PATIENT
  Sex: Female

DRUGS (9)
  1. MYCOPHENOLIC ACID [Suspect]
     Active Substance: MYCOPHENOLIC ACID
     Indication: Renal transplant
  2. FAMOTIDINE [Concomitant]
  3. FISH OIL [Concomitant]
  4. LANTUS SOLOS INJ [Concomitant]
  5. MYCOPHENOLATE MOFETIL [Concomitant]
  6. RANITIDINE [Concomitant]
  7. TACROLIMUS [Concomitant]
  8. TACROLIMUS A [Concomitant]
  9. VITAMIN E [Concomitant]

REACTIONS (1)
  - COVID-19 [None]
